FAERS Safety Report 17509661 (Version 1)
Quarter: 2020Q1

REPORT INFORMATION
  Report Type: Spontaneous
  Country: US (occurrence: US)
  Receive Date: 20200306
  Receipt Date: 20200306
  Transmission Date: 20200409
  Serious: Yes (Hospitalization)
  Sender: FDA-Public Use
  Company Number: None

PATIENT
  Age: 49 Year
  Sex: Female

DRUGS (1)
  1. HUMIRA [Suspect]
     Active Substance: ADALIMUMAB
     Indication: CROHN^S DISEASE
     Dosage: ?          OTHER FREQUENCY:EVERY WEEK;?
     Route: 058

REACTIONS (8)
  - Diarrhoea [None]
  - Dehydration [None]
  - Vomiting [None]
  - Muscle spasms [None]
  - Abdominal pain upper [None]
  - Arthralgia [None]
  - Joint swelling [None]
  - Gait disturbance [None]

NARRATIVE: CASE EVENT DATE: 20200217
